FAERS Safety Report 4700692-3 (Version None)
Quarter: 2005Q2

REPORT INFORMATION
  Report Type: 
  Country: None (occurrence: None)
  Receive Date: 20050627
  Receipt Date: 20050322
  Transmission Date: 20051028
  Serious: Yes (Hospitalization, Other)
  Sender: FDA-Public Use
  Company Number: US-MERCK-0503USA04209

PATIENT
  Age: 74 Year
  Sex: Female
  Weight: 78 kg

DRUGS (6)
  1. VIOXX [Suspect]
     Indication: OSTEOARTHRITIS
     Route: 048
     Dates: start: 20000903, end: 20030201
  2. NORVASC [Concomitant]
     Route: 065
  3. HYDROCODONE BITARTRATE + ACETAMINOPHEN [Concomitant]
     Route: 065
  4. CYCLOBENZAPRINE HYDROCHLORIDE [Concomitant]
     Route: 048
  5. CELEBREX [Concomitant]
     Route: 065
  6. METOPROLOL [Concomitant]
     Route: 065
     Dates: start: 20020101

REACTIONS (5)
  - BACTERIAL INFECTION [None]
  - CEREBROVASCULAR ACCIDENT [None]
  - CHEST PAIN [None]
  - HYPERSENSITIVITY [None]
  - TRANSIENT ISCHAEMIC ATTACK [None]
